FAERS Safety Report 19003957 (Version 1)
Quarter: 2021Q1

REPORT INFORMATION
  Report Type: Spontaneous
  Country: JP (occurrence: JP)
  Receive Date: 20210312
  Receipt Date: 20210312
  Transmission Date: 20210420
  Serious: Yes (Death, Disabling, Other)
  Sender: FDA-Public Use
  Company Number: JP-ASTRAZENECA-2020SE88604

PATIENT
  Age: 61 Year
  Sex: Female
  Weight: 58 kg

DRUGS (6)
  1. CARBOPLATIN. [Suspect]
     Active Substance: CARBOPLATIN
     Indication: OVARIAN CANCER
     Dosage: DOSE UNKNOWN
     Route: 065
  2. PACLITAXEL. [Suspect]
     Active Substance: PACLITAXEL
     Indication: OVARIAN CANCER
     Dosage: DOSE UNKNOWN
     Route: 065
  3. PACLITAXEL. [Suspect]
     Active Substance: PACLITAXEL
     Indication: OVARIAN CANCER
     Dosage: DOSE UNKNOWN
     Route: 065
  4. LYNPARZA [Suspect]
     Active Substance: OLAPARIB
     Indication: OVARIAN CANCER
     Route: 048
     Dates: start: 201808, end: 20191217
  5. CARBOPLATIN. [Suspect]
     Active Substance: CARBOPLATIN
     Indication: OVARIAN CANCER
     Dosage: DOSE UNKNOWN
     Route: 065
  6. AVASTIN [Suspect]
     Active Substance: BEVACIZUMAB
     Indication: OVARIAN CANCER
     Dosage: DOSE UNKNOWN
     Route: 065

REACTIONS (6)
  - Myelodysplastic syndrome [Fatal]
  - Ovarian cancer recurrent [Unknown]
  - Septic shock [Fatal]
  - Pancytopenia [Unknown]
  - Metastases to central nervous system [Unknown]
  - Pneumonia [Unknown]

NARRATIVE: CASE EVENT DATE: 201912
